FAERS Safety Report 6349229-6 (Version None)
Quarter: 2009Q3

REPORT INFORMATION
  Report Type: 
  Country: None (occurrence: None)
  Receive Date: 20090911
  Receipt Date: 20090902
  Transmission Date: 20100115
  Serious: Yes (Congenital Anomaly)
  Sender: FDA-Public Use
  Company Number: A0679814A

PATIENT
  Sex: Male

DRUGS (5)
  1. PAXIL [Suspect]
     Indication: DEPRESSION
     Dosage: 20MG VARIABLE DOSE
     Dates: start: 20020101, end: 20030101
  2. PAROXETINE HCL [Suspect]
     Indication: DEPRESSION
     Dosage: 20MG UNKNOWN
     Dates: start: 20020101, end: 20030101
  3. VITAMIN TAB [Concomitant]
  4. INDOCIN [Concomitant]
  5. NIFEDIPINE [Concomitant]

REACTIONS (4)
  - CARDIAC MURMUR [None]
  - DRUG EXPOSURE DURING PREGNANCY [None]
  - HEART DISEASE CONGENITAL [None]
  - PULMONARY ARTERY STENOSIS CONGENITAL [None]
